FAERS Safety Report 24758516 (Version 1)
Quarter: 2024Q4

REPORT INFORMATION
  Report Type: Spontaneous
  Country: US (occurrence: US)
  Receive Date: 20241220
  Receipt Date: 20241220
  Transmission Date: 20250114
  Serious: Yes (Hospitalization)
  Sender: MYLAN
  Company Number: US-MYLANLABS-2024M1113125

PATIENT
  Age: 7 Decade
  Sex: Male

DRUGS (15)
  1. LINEZOLID [Suspect]
     Active Substance: LINEZOLID
     Indication: Mycobacterium abscessus infection
     Dosage: UNK
     Route: 065
  2. LINEZOLID [Suspect]
     Active Substance: LINEZOLID
     Indication: Osteomyelitis
  3. LINEZOLID [Suspect]
     Active Substance: LINEZOLID
     Indication: Soft tissue infection
  4. IMIPENEM [Suspect]
     Active Substance: IMIPENEM
     Indication: Mycobacterium abscessus infection
     Dosage: UNK
     Route: 065
  5. IMIPENEM [Suspect]
     Active Substance: IMIPENEM
     Indication: Soft tissue infection
  6. IMIPENEM [Suspect]
     Active Substance: IMIPENEM
     Indication: Osteomyelitis
  7. AZITHROMYCIN [Suspect]
     Active Substance: AZITHROMYCIN
     Indication: Mycobacterium abscessus infection
     Dosage: UNK
     Route: 065
  8. AZITHROMYCIN [Suspect]
     Active Substance: AZITHROMYCIN
     Indication: Soft tissue infection
  9. AZITHROMYCIN [Suspect]
     Active Substance: AZITHROMYCIN
     Indication: Osteomyelitis
  10. ERAVACYCLINE [Suspect]
     Active Substance: ERAVACYCLINE
     Indication: Mycobacterium abscessus infection
     Dosage: UNK
     Route: 065
  11. ERAVACYCLINE [Suspect]
     Active Substance: ERAVACYCLINE
     Indication: Soft tissue infection
  12. ERAVACYCLINE [Suspect]
     Active Substance: ERAVACYCLINE
     Indication: Osteomyelitis
  13. AMIKACIN [Suspect]
     Active Substance: AMIKACIN
     Indication: Mycobacterium abscessus infection
     Dosage: UNK
     Route: 065
  14. AMIKACIN [Suspect]
     Active Substance: AMIKACIN
     Indication: Soft tissue infection
  15. AMIKACIN [Suspect]
     Active Substance: AMIKACIN
     Indication: Osteomyelitis

REACTIONS (1)
  - Drug ineffective [Unknown]
